FAERS Safety Report 21604718 (Version 2)
Quarter: 2022Q4

REPORT INFORMATION
  Report Type: Report from Study
  Country: BR (occurrence: BR)
  Receive Date: 20221116
  Receipt Date: 20221219
  Transmission Date: 20230112
  Serious: Yes (Other)
  Sender: FDA-Public Use
  Company Number: BR-BIOGEN-2022BI01168420

PATIENT
  Sex: Female
  Weight: 90 kg

DRUGS (3)
  1. TYSABRI [Suspect]
     Active Substance: NATALIZUMAB
     Indication: Multiple sclerosis
     Dosage: APPROXIMATELY 1 YEAR AND 7 MONTHS.
     Route: 050
     Dates: start: 202006
  2. GABAPENTIN [Concomitant]
     Active Substance: GABAPENTIN
     Indication: Pain
     Route: 050
     Dates: start: 2017
  3. LEVOID (SODIUM LEVOTHYROXINE) [Concomitant]
     Indication: Product used for unknown indication
     Route: 050
     Dates: start: 2007

REACTIONS (2)
  - Epilepsy [Not Recovered/Not Resolved]
  - Cervix disorder [Not Recovered/Not Resolved]

NARRATIVE: CASE EVENT DATE: 20210101
